FAERS Safety Report 5851968-8 (Version None)
Quarter: 2008Q3

REPORT INFORMATION
  Report Type: 
  Country: None (occurrence: None)
  Receive Date: 20080819
  Receipt Date: 20080801
  Transmission Date: 20090109
  Serious: Yes (Other)
  Sender: FDA-Public Use
  Company Number: 2008AL009190

PATIENT
  Sex: Female

DRUGS (1)
  1. DIGOXIN [Suspect]
     Indication: CARDIAC FAILURE

REACTIONS (10)
  - ANOREXIA [None]
  - COLD SWEAT [None]
  - DYSPNOEA [None]
  - HYPOTENSION [None]
  - MULTIPLE INJURIES [None]
  - NAUSEA [None]
  - NOCTURIA [None]
  - THERAPEUTIC AGENT TOXICITY [None]
  - VISUAL IMPAIRMENT [None]
  - VOMITING [None]
